FAERS Safety Report 13184930 (Version 2)
Quarter: 2017Q2

REPORT INFORMATION
  Report Type: Spontaneous
  Country: BE (occurrence: BE)
  Receive Date: 20170203
  Receipt Date: 20170410
  Transmission Date: 20170830
  Serious: Yes (Other)
  Sender: FDA-Public Use
  Company Number: BE-PFIZER INC-2016598820

PATIENT
  Age: 11 Year
  Sex: Male
  Weight: 29 kg

DRUGS (2)
  1. ENBREL [Suspect]
     Active Substance: ETANERCEPT
     Indication: JUVENILE IDIOPATHIC ARTHRITIS
     Dosage: 23.2 MG, WEEKLY
     Route: 058
     Dates: start: 20161108
  2. LEDERTREXATE [Suspect]
     Active Substance: METHOTREXATE
     Dosage: 12.5 MG, UNK
     Route: 048
     Dates: start: 20140603

REACTIONS (2)
  - Cytomegalovirus infection [Recovering/Resolving]
  - Keratitis [Unknown]

NARRATIVE: CASE EVENT DATE: 20161206
